FAERS Safety Report 8990991 (Version 2)
Quarter: 2013Q1

REPORT INFORMATION
  Report Type: Spontaneous
  Country: US (occurrence: None)
  Receive Date: 20121221
  Receipt Date: 20130228
  Transmission Date: 20140127
  Serious: Yes (Other)
  Sender: FDA-Public Use
  Company Number: JPI-P-027080

PATIENT
  Age: 33 Year
  Sex: Female

DRUGS (3)
  1. XYREM (500 MILLIGRAM/MILLILITERS, SOLUTION)(SODIUM OXYBATE) [Suspect]
     Indication: NARCOLEPSY
     Dosage: (1.5 GM, 2 IN 1 D)
     Route: 048
     Dates: start: 20060918
  2. SERTRALINE [Concomitant]
  3. LO ESTROGEN [Concomitant]

REACTIONS (2)
  - Rheumatoid arthritis [None]
  - Anxiety [None]
